FAERS Safety Report 7759024-9 (Version None)
Quarter: 2011Q3

REPORT INFORMATION
  Report Type: 
  Country: None (occurrence: None)
  Receive Date: 20110919
  Receipt Date: 20110914
  Transmission Date: 20111222
  Serious: Yes (Hospitalization, Other)
  Sender: FDA-Public Use
  Company Number: IT-BRISTOL-MYERS SQUIBB COMPANY-15602295

PATIENT
  Age: 49 Year
  Sex: Male

DRUGS (5)
  1. REYATAZ [Suspect]
     Dosage: INTERRUPT ON 21FEB2011
     Dates: start: 20050628
  2. RITONAVIR [Suspect]
     Dosage: INTERRUPT ON 21FEB2011
     Dates: start: 20050628
  3. TRUVADA [Suspect]
  4. VIREAD [Suspect]
     Dosage: INTERRUPT ON 21FEB2011
     Dates: start: 20050628
  5. VIDEX [Suspect]
     Dosage: INTERRUPT ON 21FEB2011
     Dates: start: 20050628

REACTIONS (5)
  - URINARY TRACT INFECTION [None]
  - RENAL COLIC [None]
  - NEPHROLITHIASIS [None]
  - HYDRONEPHROSIS [None]
  - BLOOD CREATININE INCREASED [None]
